FAERS Safety Report 7417860-2 (Version None)
Quarter: 2011Q2

REPORT INFORMATION
  Report Type: 
  Country: None (occurrence: None)
  Receive Date: 20110406
  Receipt Date: 20110325
  Transmission Date: 20111010
  Serious: Yes (Hospitalization)
  Sender: FDA-Public Use
  Company Number: 8053917

PATIENT
  Sex: Male
  Weight: 76 kg

DRUGS (9)
  1. CALCIUM SANDOZ /00751501/ [Concomitant]
  2. VIGANTOLETTEN /00318501/ [Concomitant]
  3. HEPATIL [Concomitant]
  4. CERTOLIZUMAB PEGOL (CERTOLIZUMAB PEGOL) [Suspect]
     Indication: CROHN'S DISEASE
     Dosage: SEE IMAGE
     Route: 058
     Dates: start: 20041201, end: 20050331
  5. CERTOLIZUMAB PEGOL (CERTOLIZUMAB PEGOL) [Suspect]
     Indication: CROHN'S DISEASE
     Dosage: SEE IMAGE
     Route: 058
     Dates: start: 20050414
  6. CERTOLIZUMAB PEGOL (CERTOLIZUMAB PEGOL) [Suspect]
     Indication: CROHN'S DISEASE
     Dosage: SEE IMAGE
     Route: 058
     Dates: start: 20041004, end: 20041029
  7. MESALAMINE [Concomitant]
  8. MAGNESIUM W/VITAMIN B6 [Concomitant]
  9. TARDYFERON /00023503/ [Concomitant]

REACTIONS (2)
  - LIVER DISORDER [None]
  - PSORIASIS [None]
